FAERS Safety Report 10142674 (Version 1)
Quarter: 2014Q2

REPORT INFORMATION
  Report Type: Report from Study
  Country: US (occurrence: US)
  Receive Date: 20140430
  Receipt Date: 20140430
  Transmission Date: 20141212
  Serious: Yes (Life-Threatening, Other)
  Sender: FDA-Public Use
  Company Number: US-ROCHE-1389289

PATIENT
  Sex: Male

DRUGS (14)
  1. NUTROPIN [Suspect]
     Indication: FAILURE TO THRIVE
     Route: 058
  2. ABILIFY [Concomitant]
     Route: 048
  3. ALLEGRA [Concomitant]
     Route: 048
  4. CYCLOSPORINE [Concomitant]
     Dosage: TAKE 7 CAPSULES
     Route: 048
  5. EPIPEN [Concomitant]
     Route: 030
  6. FLOVENT HFA [Concomitant]
     Dosage: 2 PUFF
     Route: 065
  7. KLONOPIN [Concomitant]
     Dosage: 0.5/0.5/0.75 MG
     Route: 065
  8. LYRICA [Concomitant]
     Route: 048
  9. ONDANSETRON HCL [Concomitant]
     Route: 048
  10. OXYCODONE [Concomitant]
     Dosage: AS REQUIRED
     Route: 048
  11. PERCOCET [Concomitant]
     Dosage: 5 MG/325 MG?1-2 TABLETS ?EVERY 4-6 HOURS
     Route: 048
  12. PRILOSEC [Concomitant]
     Route: 048
  13. TOPAMAX [Concomitant]
     Route: 048
  14. ZOLOFT [Concomitant]
     Route: 048

REACTIONS (5)
  - Respiratory arrest [Unknown]
  - H1N1 influenza [Unknown]
  - Anaphylactic reaction [Unknown]
  - Abdominal pain [Not Recovered/Not Resolved]
  - Nausea [Unknown]
